FAERS Safety Report 24717273 (Version 1)
Quarter: 2024Q4

REPORT INFORMATION
  Report Type: Spontaneous
  Country: US (occurrence: None)
  Receive Date: 20241209
  Receipt Date: 20241209
  Transmission Date: 20250115
  Serious: No
  Sender: Public
  Company Number: None

PATIENT
  Age: 68 Year
  Sex: Female
  Weight: 106.65 kg

DRUGS (8)
  1. TOPIRAMATE [Suspect]
     Active Substance: TOPIRAMATE
     Indication: Obesity
     Dates: start: 20240821, end: 20241115
  2. CELECOXIB [Concomitant]
     Active Substance: CELECOXIB
  3. ERGOCALCIFEROL [Concomitant]
     Active Substance: ERGOCALCIFEROL
  4. FUROSEMIDE [Concomitant]
     Active Substance: FUROSEMIDE
  5. METHOTREXATE [Concomitant]
     Active Substance: METHOTREXATE
  6. INFLIXIMAB [Concomitant]
     Active Substance: INFLIXIMAB
  7. OLMESARTAN [Concomitant]
     Active Substance: OLMESARTAN
  8. TRAMADOL [Concomitant]
     Active Substance: TRAMADOL

REACTIONS (1)
  - Chest pain [None]

NARRATIVE: CASE EVENT DATE: 20241001
